FAERS Safety Report 7023638-4 (Version None)
Quarter: 2010Q3

REPORT INFORMATION
  Report Type: 
  Country: None (occurrence: None)
  Receive Date: 20100929
  Receipt Date: 20100929
  Transmission Date: 20110219
  Serious: No
  Sender: FDA-Public Use
  Company Number: None

PATIENT
  Age: 81 Year
  Sex: Male

DRUGS (1)
  1. WARFARIN SODIUM [Suspect]
     Indication: CEREBROVASCULAR ACCIDENT
     Dosage: TAKE 1 TABLET DAILY AT 5:00 PM
     Dates: start: 20100917

REACTIONS (2)
  - CEREBROVASCULAR ACCIDENT [None]
  - TREATMENT FAILURE [None]
